FAERS Safety Report 8799935 (Version 1)
Quarter: 2012Q4

REPORT INFORMATION
  Report Type: Spontaneous
  Country: US (occurrence: None)
  Receive Date: 20120918
  Receipt Date: 20120918
  Transmission Date: 20130627
  Serious: No
  Sender: FDA-Public Use
  Company Number: None

PATIENT
  Sex: Female

DRUGS (3)
  1. FLUCONAZOLE [Suspect]
     Dosage: 150mg Orally
     Route: 048
     Dates: start: 20111208
  2. FLUCONAZOLE [Suspect]
     Dosage: 150mg qd, may repeat Qwk prn
     Route: 048
     Dates: start: 20120820, end: 20120821
  3. FLUCONAZOLE [Suspect]
     Dosage: 150mg qd, may repeat Qwk prn
     Route: 048
     Dates: start: 20120820, end: 20120821

REACTIONS (3)
  - Infection [None]
  - Vaginal haemorrhage [None]
  - Vulvovaginal burning sensation [None]
